FAERS Safety Report 12645158 (Version 1)
Quarter: 2016Q3

REPORT INFORMATION
  Report Type: Spontaneous
  Country: JP (occurrence: JP)
  Receive Date: 20160811
  Receipt Date: 20160811
  Transmission Date: 20161109
  Serious: Yes (Other)
  Sender: FDA-Public Use
  Company Number: JP-SA-2016SA141449

PATIENT
  Age: 73 Year
  Sex: Female

DRUGS (3)
  1. GARENOXACIN [Concomitant]
     Active Substance: GARENOXACIN
     Indication: BRONCHITIS
  2. TELMISARTAN. [Concomitant]
     Active Substance: TELMISARTAN
     Indication: HYPERTENSION
  3. EPINEPHRINE. [Suspect]
     Active Substance: EPINEPHRINE
     Route: 040

REACTIONS (1)
  - Electrocardiogram QT prolonged [Unknown]
